FAERS Safety Report 5215021-9 (Version None)
Quarter: 2007Q1

REPORT INFORMATION
  Report Type: 
  Country: None (occurrence: None)
  Receive Date: 20070117
  Receipt Date: 20070102
  Transmission Date: 20070707
  Serious: Yes (Other)
  Sender: FDA-Public Use
  Company Number: 2007RR-05048

PATIENT
  Age: 28 Year
  Sex: Female

DRUGS (4)
  1. PAROXETINE [Suspect]
     Dosage: 30 MG, QD
     Dates: start: 19970902, end: 20010101
  2. IBUPROFEN [Suspect]
     Dosage: ORAL
     Route: 048
  3. SERTRALINE [Concomitant]
  4. SULPIRIDE [Concomitant]

REACTIONS (8)
  - DEPRESSION [None]
  - DRUG INEFFECTIVE [None]
  - DRUG WITHDRAWAL SYNDROME [None]
  - HYPERHIDROSIS [None]
  - OVERDOSE [None]
  - PRURITUS [None]
  - SUICIDAL IDEATION [None]
  - THERAPY REGIMEN CHANGED [None]
